FAERS Safety Report 21935035 (Version 1)
Quarter: 2023Q1

REPORT INFORMATION
  Report Type: Spontaneous
  Country: US (occurrence: US)
  Receive Date: 20230201
  Receipt Date: 20230201
  Transmission Date: 20230417
  Serious: Yes (Hospitalization, Other)
  Sender: FDA-Public Use
  Company Number: US-BRISTOL-MYERS SQUIBB COMPANY-2023-015019

PATIENT
  Age: 73 Year
  Sex: Male

DRUGS (3)
  1. THALOMID [Suspect]
     Active Substance: THALIDOMIDE
     Indication: Aphthous ulcer
     Dosage: DOSE : ^15MG^;     FREQ : DAILY
     Route: 048
  2. THALOMID [Suspect]
     Active Substance: THALIDOMIDE
     Indication: Aphthous ulcer
     Route: 048
  3. BIKTARVY [Concomitant]
     Active Substance: BICTEGRAVIR SODIUM\EMTRICITABINE\TENOFOVIR ALAFENAMIDE FUMARATE
     Indication: HIV infection
     Route: 048

REACTIONS (2)
  - Respiratory failure [Unknown]
  - COVID-19 [Unknown]

NARRATIVE: CASE EVENT DATE: 20221022
